FAERS Safety Report 21148936 (Version 1)
Quarter: 2022Q3

REPORT INFORMATION
  Report Type: Spontaneous
  Country: US (occurrence: US)
  Receive Date: 20220729
  Receipt Date: 20220729
  Transmission Date: 20221026
  Serious: Yes (Other)
  Sender: FDA-Public Use
  Company Number: US-AMGEN-USASP2022126775

PATIENT
  Age: 59 Year
  Sex: Male

DRUGS (11)
  1. XGEVA [Suspect]
     Active Substance: DENOSUMAB
     Indication: Prostate cancer
     Dosage: UNK, Q3WK
     Route: 042
     Dates: start: 20220402
  2. XGEVA [Suspect]
     Active Substance: DENOSUMAB
     Indication: Off label use
  3. CABOMETYX [Suspect]
     Active Substance: CABOZANTINIB S-MALATE
     Indication: Prostate cancer
     Dosage: 40 MILLIGRAM, QD
     Route: 065
     Dates: start: 20220402
  4. OXYCODONE [Concomitant]
     Active Substance: OXYCODONE
  5. MORPHINE SULFATE [Concomitant]
     Active Substance: MORPHINE SULFATE
  6. LISINOPRIL [Concomitant]
     Active Substance: LISINOPRIL
  7. MAGNESIUM OXIDE [Concomitant]
     Active Substance: MAGNESIUM OXIDE
  8. GABAPENTIN [Concomitant]
     Active Substance: GABAPENTIN
  9. IBUPROFEN [Concomitant]
     Active Substance: IBUPROFEN
  10. INDAPAMIDE [Concomitant]
     Active Substance: INDAPAMIDE
  11. ZANAFLEX [Concomitant]
     Active Substance: TIZANIDINE HYDROCHLORIDE
     Dosage: UNK

REACTIONS (9)
  - Metastases to lung [Not Recovered/Not Resolved]
  - Metastases to liver [Not Recovered/Not Resolved]
  - Myalgia [Not Recovered/Not Resolved]
  - Pain [Unknown]
  - Off label use [Unknown]
  - Nausea [Not Recovered/Not Resolved]
  - Fatigue [Not Recovered/Not Resolved]
  - Blood magnesium decreased [Unknown]
  - Diarrhoea [Not Recovered/Not Resolved]

NARRATIVE: CASE EVENT DATE: 20220402
